FAERS Safety Report 11096556 (Version 1)
Quarter: 2015Q2

REPORT INFORMATION
  Report Type: Spontaneous
  Country: US (occurrence: None)
  Receive Date: 20150505
  Receipt Date: 20150505
  Transmission Date: 20150821
  Serious: Yes (Other)
  Sender: FDA-Public Use
  Company Number: 2015050782

PATIENT
  Sex: Female

DRUGS (1)
  1. STIMATE [Suspect]
     Active Substance: DESMOPRESSIN ACETATE
     Route: 045

REACTIONS (4)
  - Weight increased [None]
  - Heart rate increased [None]
  - Migraine [None]
  - Haemophilia [None]
